FAERS Safety Report 22286985 (Version 1)
Quarter: 2023Q2

REPORT INFORMATION
  Report Type: Spontaneous
  Country: SE (occurrence: SE)
  Receive Date: 20230505
  Receipt Date: 20230505
  Transmission Date: 20230722
  Serious: Yes (Other)
  Sender: FDA-Public Use
  Company Number: None

PATIENT
  Sex: Female

DRUGS (2)
  1. ELIQUIS [Suspect]
     Active Substance: APIXABAN
     Indication: Deep vein thrombosis
     Dates: start: 2021
  2. ELIQUIS [Suspect]
     Active Substance: APIXABAN
     Indication: Pulmonary embolism

REACTIONS (36)
  - Dizziness [Unknown]
  - Wheezing [Unknown]
  - Impaired healing [Unknown]
  - Movement disorder [Unknown]
  - Skin discolouration [Unknown]
  - Peripheral swelling [Unknown]
  - Contusion [Unknown]
  - Discomfort [Unknown]
  - Chest pain [Unknown]
  - Feeling cold [Unknown]
  - Headache [Unknown]
  - Muscular weakness [Unknown]
  - Dyspnoea exertional [Unknown]
  - Aphasia [Unknown]
  - Visual impairment [Unknown]
  - Balance disorder [Unknown]
  - Pain in extremity [Unknown]
  - Haemorrhage [Unknown]
  - Head discomfort [Unknown]
  - Visual field defect [Unknown]
  - Back pain [Unknown]
  - Areflexia [Unknown]
  - Axillary pain [Unknown]
  - Periorbital pain [Unknown]
  - Paraesthesia [Unknown]
  - Blindness transient [Unknown]
  - Arthralgia [Unknown]
  - Muscle twitching [Unknown]
  - Gait disturbance [Unknown]
  - Wound [Unknown]
  - Nausea [Unknown]
  - Fatigue [Unknown]
  - Cold sweat [Unknown]
  - Muscle spasms [Unknown]
  - Hypoaesthesia [Unknown]
  - Amnesia [Unknown]

NARRATIVE: CASE EVENT DATE: 20210101
